FAERS Safety Report 4866522-4 (Version None)
Quarter: 2005Q4

REPORT INFORMATION
  Report Type: 
  Country: None (occurrence: None)
  Receive Date: 20051227
  Receipt Date: 20051005
  Transmission Date: 20060501
  Serious: Yes (Hospitalization)
  Sender: FDA-Public Use
  Company Number: US-MERCK-0510USA04689

PATIENT
  Age: 67 Year
  Sex: Male
  Weight: 95 kg

DRUGS (7)
  1. VIOXX [Suspect]
     Indication: ARTHRITIS
     Route: 048
     Dates: start: 20020301, end: 20040901
  2. VIOXX [Suspect]
     Route: 048
     Dates: start: 20020301, end: 20040901
  3. VIOXX [Suspect]
     Indication: PAIN
     Route: 048
     Dates: start: 20020301, end: 20040901
  4. VIOXX [Suspect]
     Route: 048
     Dates: start: 20020301, end: 20040901
  5. ATENOLOL [Concomitant]
     Route: 065
  6. LANOXIN [Concomitant]
     Route: 065
  7. LOTENSIN [Concomitant]
     Route: 065

REACTIONS (11)
  - ATRIAL FIBRILLATION [None]
  - BLOOD CHOLESTEROL INCREASED [None]
  - CAROTID ARTERY STENOSIS [None]
  - CEREBRAL ARTERY OCCLUSION [None]
  - DYSPNOEA [None]
  - FLANK PAIN [None]
  - HEART RATE IRREGULAR [None]
  - HYPERTENSION [None]
  - PNEUMONIA [None]
  - SICK SINUS SYNDROME [None]
  - SYNCOPE [None]
